FAERS Safety Report 18410086 (Version 1)
Quarter: 2020Q4

REPORT INFORMATION
  Report Type: Spontaneous
  Country: US (occurrence: US)
  Receive Date: 20201021
  Receipt Date: 20201021
  Transmission Date: 20210114
  Serious: Yes (Hospitalization)
  Sender: FDA-Public Use
  Company Number: None

PATIENT
  Age: 74 Year
  Sex: Male
  Weight: 83.25 kg

DRUGS (9)
  1. CINNAMON. [Concomitant]
     Active Substance: CINNAMON
  2. BRAFTOVI [Suspect]
     Active Substance: ENCORAFENIB
     Indication: COLON CANCER
     Route: 048
     Dates: start: 20200825, end: 20201003
  3. GLUCOSAMINE [Concomitant]
     Active Substance: GLUCOSAMINE
  4. FISH OIL [Concomitant]
     Active Substance: FISH OIL
  5. IMBRUVICA [Concomitant]
     Active Substance: IBRUTINIB
  6. IRON [Concomitant]
     Active Substance: IRON
  7. COENZYME Q10 [Concomitant]
     Active Substance: DIETARY SUPPLEMENT\UBIDECARENONE
  8. VITAMIN D3 [Concomitant]
     Active Substance: CHOLECALCIFEROL
  9. PROBIOTIC [Concomitant]
     Active Substance: PROBIOTICS NOS

REACTIONS (3)
  - Subdural haematoma [None]
  - Fall [None]
  - Therapy interrupted [None]

NARRATIVE: CASE EVENT DATE: 20201003
